FAERS Safety Report 7674225-6 (Version None)
Quarter: 2011Q3

REPORT INFORMATION
  Report Type: 
  Country: None (occurrence: None)
  Receive Date: 20110810
  Receipt Date: 20110729
  Transmission Date: 20111222
  Serious: Yes (Hospitalization, Other)
  Sender: FDA-Public Use
  Company Number: US-ELI_LILLY_AND_COMPANY-US201106003015

PATIENT
  Sex: Male

DRUGS (7)
  1. HYDROCHLOROTHIAZIDE [Concomitant]
     Dosage: UNK
  2. DORZOLAMIDE [Concomitant]
     Dosage: UNK
  3. NAMENDA [Concomitant]
     Dosage: UNK
  4. HUMALOG [Suspect]
     Dosage: 30 U, EACH MORNING
  5. LEVOTHYROXINE SODIUM [Concomitant]
     Dosage: UNK
  6. LANTUS [Concomitant]
     Dosage: UNK, QD
  7. LIPITOR [Concomitant]
     Indication: HYPERLIPIDAEMIA
     Dosage: UNK

REACTIONS (9)
  - BLOOD GLUCOSE INCREASED [None]
  - HYPOGLYCAEMIA UNAWARENESS [None]
  - GLAUCOMA [None]
  - CEREBROVASCULAR ACCIDENT [None]
  - BLINDNESS TRANSIENT [None]
  - DIABETES MELLITUS INADEQUATE CONTROL [None]
  - COGNITIVE DISORDER [None]
  - SPEECH DISORDER [None]
  - DIABETIC RETINOPATHY [None]
